FAERS Safety Report 8297949-9 (Version None)
Quarter: 2012Q2

REPORT INFORMATION
  Report Type: 
  Country: None (occurrence: None)
  Receive Date: 20120419
  Receipt Date: 20120413
  Transmission Date: 20120825
  Serious: No
  Sender: FDA-Public Use
  Company Number: US-B.I. PHARMACEUTICALS,INC./RIDGEFIELD-2012-BP-07042BP

PATIENT
  Sex: Female

DRUGS (6)
  1. LISINOPRIL AND HYDROCHLOROTHIAZIDE [Concomitant]
     Indication: HYPERTENSION
     Route: 048
  2. OMEPRAZOLE [Concomitant]
     Indication: GASTROOESOPHAGEAL REFLUX DISEASE
     Dosage: 20 MG
     Route: 048
  3. SPIRIVA [Suspect]
     Indication: CHRONIC OBSTRUCTIVE PULMONARY DISEASE
     Dosage: 18 MCG
     Route: 055
     Dates: start: 20111001, end: 20120413
  4. FIORINAL [Concomitant]
     Indication: MIGRAINE
  5. BUSPAR [Concomitant]
     Indication: ANXIETY
     Dosage: 10 MG
     Route: 048
  6. CELEXA [Concomitant]
     Indication: DEPRESSION
     Dosage: 20 MG
     Route: 048

REACTIONS (9)
  - DIZZINESS [None]
  - HYPOAESTHESIA [None]
  - MIGRAINE [None]
  - DRY EYE [None]
  - PAIN IN JAW [None]
  - WEIGHT INCREASED [None]
  - EYE PAIN [None]
  - URINARY RETENTION [None]
  - VISION BLURRED [None]
